FAERS Safety Report 11539569 (Version 2)
Quarter: 2016Q1

REPORT INFORMATION
  Report Type: Spontaneous
  Country: JP (occurrence: JP)
  Receive Date: 20150923
  Receipt Date: 20160122
  Transmission Date: 20160525
  Serious: Yes (Other)
  Sender: FDA-Public Use
  Company Number: JP-009507513-1509JPN010362

PATIENT
  Age: 46 Year
  Sex: Female

DRUGS (1)
  1. SINGULAIR [Suspect]
     Active Substance: MONTELUKAST SODIUM
     Dosage: DAILY DOSE UNKNOWN
     Route: 048
     Dates: start: 201211, end: 201211

REACTIONS (1)
  - Drug-induced liver injury [Unknown]
